FAERS Safety Report 4569645-2 (Version None)
Quarter: 2005Q1

REPORT INFORMATION
  Report Type: 
  Country: None (occurrence: None)
  Receive Date: 20050201
  Receipt Date: 20050121
  Transmission Date: 20050727
  Serious: Yes (Other)
  Sender: FDA-Public Use
  Company Number: GB-SHR-03-015324

PATIENT
  Sex: Female

DRUGS (1)
  1. MIRENA [Suspect]
     Dosage: 20 UG/DAY, CONT, INTRA-UTERINE
     Route: 015

REACTIONS (7)
  - FLUID RETENTION [None]
  - JOINT SWELLING [None]
  - NIGHT SWEATS [None]
  - OEDEMA PERIPHERAL [None]
  - POLYURIA [None]
  - SWELLING [None]
  - VAGINAL HAEMORRHAGE [None]
